FAERS Safety Report 13575710 (Version 2)
Quarter: 2017Q2

REPORT INFORMATION
  Report Type: Spontaneous
  Country: GR (occurrence: GR)
  Receive Date: 20170524
  Receipt Date: 20170620
  Transmission Date: 20170830
  Serious: Yes (Other)
  Sender: FDA-Public Use
  Company Number: GR-ROCHE-1936039

PATIENT
  Age: 70 Year
  Sex: Male

DRUGS (5)
  1. VEMURAFENIB [Suspect]
     Active Substance: VEMURAFENIB
     Indication: LUNG NEOPLASM MALIGNANT
     Dosage: 4X2
     Route: 065
     Dates: start: 20150309
  2. COBIMETINIB [Suspect]
     Active Substance: COBIMETINIB
     Indication: LUNG NEOPLASM MALIGNANT
     Dosage: 3X1
     Route: 065
     Dates: start: 20150309
  3. VEMURAFENIB [Suspect]
     Active Substance: VEMURAFENIB
     Dosage: 3X2
     Route: 065
  4. PEMBROLIZUMAB. [Suspect]
     Active Substance: PEMBROLIZUMAB
     Indication: LUNG NEOPLASM MALIGNANT
     Route: 065
  5. COBIMETINIB [Suspect]
     Active Substance: COBIMETINIB
     Dosage: 2X1
     Route: 065

REACTIONS (21)
  - Glossitis [Unknown]
  - Visual acuity reduced [Unknown]
  - Decreased appetite [Unknown]
  - Rash [Unknown]
  - Anosmia [Unknown]
  - Arthralgia [Unknown]
  - Dermatitis [Recovering/Resolving]
  - Nausea [Unknown]
  - Dysgeusia [Unknown]
  - Erythema [Unknown]
  - Headache [Unknown]
  - Dysgeusia [Unknown]
  - Fatigue [Unknown]
  - Psychotic disorder [Unknown]
  - Pyrexia [Unknown]
  - Vomiting [Unknown]
  - Memory impairment [Unknown]
  - Somnolence [Unknown]
  - Constipation [Unknown]
  - Anaemia [Unknown]
  - Asthenia [Unknown]

NARRATIVE: CASE EVENT DATE: 20150313
